FAERS Safety Report 8568571 (Version 3)
Quarter: 2013Q1

REPORT INFORMATION
  Report Type: Spontaneous
  Country: MX (occurrence: MX)
  Receive Date: 20120518
  Receipt Date: 20130128
  Transmission Date: 20140127
  Serious: Yes (Other)
  Sender: FDA-Public Use
  Company Number: PHHY2012MX042036

PATIENT
  Age: 38 Year
  Sex: Male

DRUGS (5)
  1. GALVUS MET [Suspect]
     Dosage: 0.5 DF, BID
     Dates: start: 20111010
  2. RASILEZ [Suspect]
     Indication: HYPERTENSION
     Dosage: 2 DF (300 MG), DAILY
     Dates: start: 20110915
  3. ATORVASTATIN [Concomitant]
     Indication: BLOOD CHOLESTEROL INCREASED
     Dosage: 40 MG, QD
  4. ATORVASTATIN [Concomitant]
     Indication: BLOOD TRIGLYCERIDES INCREASED
  5. CRESTOR [Concomitant]
     Indication: BLOOD TRIGLYCERIDES INCREASED
     Dosage: 40 MG, BID

REACTIONS (4)
  - Asphyxia [Recovered/Resolved]
  - Blood pressure inadequately controlled [Recovered/Resolved]
  - Fatigue [Recovered/Resolved]
  - Wrong technique in drug usage process [Unknown]
